FAERS Safety Report 7030344-9 (Version None)
Quarter: 2010Q4

REPORT INFORMATION
  Report Type: 
  Country: None (occurrence: None)
  Receive Date: 20101006
  Receipt Date: 20100928
  Transmission Date: 20110411
  Serious: Yes (Hospitalization)
  Sender: FDA-Public Use
  Company Number: BR-US-EMD SERONO, INC.-7013041

PATIENT
  Sex: Female

DRUGS (7)
  1. REBIF [Suspect]
     Indication: RELAPSING-REMITTING MULTIPLE SCLEROSIS
     Route: 058
  2. DEXA-CITONEURIN [Concomitant]
  3. MELOXICAM [Concomitant]
  4. PARACETAMOL [Concomitant]
  5. IBUPROFEN [Concomitant]
  6. GABAPENTIN [Concomitant]
  7. AMYTRIPTYLINE [Concomitant]

REACTIONS (2)
  - CARPAL TUNNEL SYNDROME [None]
  - OEDEMA PERIPHERAL [None]
